FAERS Safety Report 9109902 (Version 5)
Quarter: 2013Q2

REPORT INFORMATION
  Report Type: Spontaneous
  Country: US (occurrence: US)
  Receive Date: 20130222
  Receipt Date: 20130521
  Transmission Date: 20140414
  Serious: Yes (Other)
  Sender: FDA-Public Use
  Company Number: US-009507513-1302USA010151

PATIENT
  Age: 84 Year
  Sex: Female

DRUGS (6)
  1. PROSCAR [Suspect]
     Dosage: 20 MG, QD
     Route: 048
     Dates: start: 20130124, end: 201302
  2. KLOR-CON [Concomitant]
  3. PREDNISONE [Concomitant]
  4. SOTALOL HYDROCHLORIDE [Concomitant]
  5. XARELTO [Concomitant]
  6. CYANOCOBALAMIN [Concomitant]

REACTIONS (5)
  - Deafness [Unknown]
  - Wrong drug administered [Unknown]
  - Red blood cell sedimentation rate increased [Unknown]
  - Drug dispensing error [Unknown]
  - Overdose [Unknown]
